FAERS Safety Report 21551288 (Version 2)
Quarter: 2022Q4

REPORT INFORMATION
  Report Type: Report from Study
  Country: BE (occurrence: BE)
  Receive Date: 20221103
  Receipt Date: 20221118
  Transmission Date: 20230112
  Serious: Yes (Other)
  Sender: FDA-Public Use
  Company Number: BE-GILEAD-2022-0603745

PATIENT
  Sex: Female

DRUGS (3)
  1. SACITUZUMAB GOVITECAN [Suspect]
     Active Substance: SACITUZUMAB GOVITECAN
     Indication: Triple negative breast cancer
     Dosage: 760 MG, C1D1 AND D8
     Route: 065
     Dates: start: 20220825, end: 20220831
  2. SACITUZUMAB GOVITECAN [Suspect]
     Active Substance: SACITUZUMAB GOVITECAN
     Dosage: 760 MG, C2D1 AND D8
     Route: 065
     Dates: start: 20220922, end: 20220929
  3. SACITUZUMAB GOVITECAN [Suspect]
     Active Substance: SACITUZUMAB GOVITECAN
     Dosage: 760 MG, C3D1 AND D8
     Route: 065
     Dates: start: 20221013, end: 20221020

REACTIONS (2)
  - Disease progression [Not Recovered/Not Resolved]
  - Therapy non-responder [Not Recovered/Not Resolved]
